FAERS Safety Report 18144825 (Version 1)
Quarter: 2020Q3

REPORT INFORMATION
  Report Type: Spontaneous
  Country: US (occurrence: US)
  Receive Date: 20200813
  Receipt Date: 20200813
  Transmission Date: 20201103
  Serious: No
  Sender: FDA-Public Use
  Company Number: None

PATIENT
  Age: 42 Year
  Sex: Male

DRUGS (1)
  1. REMICADE [Suspect]
     Active Substance: INFLIXIMAB
     Dosage: ?          OTHER DOSE:5MG/KG;OTHER FREQUENCY:OTHER;?
     Route: 042
     Dates: start: 201902, end: 202007

REACTIONS (1)
  - Psoriasis [None]

NARRATIVE: CASE EVENT DATE: 20200813
